FAERS Safety Report 10444039 (Version 1)
Quarter: 2014Q3

REPORT INFORMATION
  Report Type: Spontaneous
  Country: US (occurrence: None)
  Receive Date: 20140909
  Receipt Date: 20140909
  Transmission Date: 20150326
  Serious: No
  Sender: FDA-Public Use
  Company Number: None

PATIENT

DRUGS (1)
  1. SYNVISC [Suspect]
     Active Substance: HYALURONATE SODIUM

REACTIONS (4)
  - Arthralgia [None]
  - Impaired work ability [None]
  - Unevaluable event [None]
  - Pain [None]
